FAERS Safety Report 21331852 (Version 1)
Quarter: 2022Q3

REPORT INFORMATION
  Report Type: Spontaneous
  Country: FR (occurrence: FR)
  Receive Date: 20220914
  Receipt Date: 20220914
  Transmission Date: 20221026
  Serious: Yes (Hospitalization)
  Sender: FDA-Public Use
  Company Number: None

PATIENT
  Age: 72 Year
  Sex: Female
  Weight: 52.4 kg

DRUGS (3)
  1. CARBOPLATIN [Suspect]
     Active Substance: CARBOPLATIN
     Indication: Non-small cell lung cancer metastatic
     Dosage: 274 MG , DURATION : 54 DAYS
     Dates: start: 20220609, end: 20220802
  2. PEMETREXED [Suspect]
     Active Substance: PEMETREXED
     Indication: Non-small cell lung cancer metastatic
     Dosage: 850 MG , DURATION : 54 DAYS
     Dates: start: 20220609, end: 20220802
  3. PEMBROLIZUMAB [Suspect]
     Active Substance: PEMBROLIZUMAB
     Indication: Non-small cell lung cancer metastatic
     Dosage: 200 MG , DURATION : 54 DAYS
     Dates: start: 20220609, end: 20220802

REACTIONS (1)
  - Bicytopenia [Unknown]

NARRATIVE: CASE EVENT DATE: 20220816
